FAERS Safety Report 11758944 (Version 1)
Quarter: 2015Q4

REPORT INFORMATION
  Report Type: Spontaneous
  Country: US (occurrence: None)
  Receive Date: 20151119
  Receipt Date: 20151119
  Transmission Date: 20160304
  Serious: No
  Sender: FDA-Public Use
  Company Number: None

PATIENT
  Age: 73 Year
  Sex: Female
  Weight: 65.77 kg

DRUGS (8)
  1. MAGNESIUM [Concomitant]
     Active Substance: MAGNESIUM
  2. GABAPENTIN. [Concomitant]
     Active Substance: GABAPENTIN
  3. BONIVA [Suspect]
     Active Substance: IBANDRONATE SODIUM
     Indication: OSTEOPOROSIS
     Dosage: 150
     Route: 048
     Dates: start: 20150501, end: 20150601
  4. VITAMIN D3 [Concomitant]
     Active Substance: CHOLECALCIFEROL
  5. B12 COMPLEX [Concomitant]
  6. LUTEIN [Concomitant]
     Active Substance: LUTEIN
  7. DULOXETINE. [Concomitant]
     Active Substance: DULOXETINE
  8. CLOBETASOL FOAM CLOBETASOL GEL [Concomitant]

REACTIONS (5)
  - Rash erythematous [None]
  - Arthralgia [None]
  - Pain in extremity [None]
  - Rash pruritic [None]
  - Groin pain [None]

NARRATIVE: CASE EVENT DATE: 20150615
